FAERS Safety Report 19479833 (Version 1)
Quarter: 2021Q2

REPORT INFORMATION
  Report Type: Spontaneous
  Country: DE (occurrence: DE)
  Receive Date: 20210630
  Receipt Date: 20210630
  Transmission Date: 20210717
  Serious: Yes (Hospitalization)
  Sender: FDA-Public Use
  Company Number: DE-BIOMARINAP-DE-2021-137172

PATIENT
  Age: 13 Year
  Sex: Female
  Weight: 39 kg

DRUGS (1)
  1. VIMIZIM [Suspect]
     Active Substance: ELOSULFASE ALFA
     Indication: MUCOPOLYSACCHARIDOSIS IV
     Dosage: 70 MILLIGRAM, QW
     Route: 042
     Dates: start: 2019

REACTIONS (4)
  - Vomiting [Unknown]
  - Abdominal pain [Unknown]
  - Nausea [Unknown]
  - Gastrointestinal viral infection [Unknown]

NARRATIVE: CASE EVENT DATE: 20210616
